FAERS Safety Report 13855310 (Version 1)
Quarter: 2017Q3

REPORT INFORMATION
  Report Type: Spontaneous
  Country: US (occurrence: US)
  Receive Date: 20170810
  Receipt Date: 20170810
  Transmission Date: 20171127
  Serious: No
  Sender: FDA-Public Use
  Company Number: US-VIFOR (INTERNATIONAL) INC.-VIT-2017-04645

PATIENT
  Age: 63 Year
  Sex: Female
  Weight: 65.83 kg

DRUGS (15)
  1. FERROUS SULFATE. [Concomitant]
     Active Substance: FERROUS SULFATE
  2. LABETALOL [Concomitant]
     Active Substance: LABETALOL\LABETALOL HYDROCHLORIDE
  3. LOSARTAN. [Concomitant]
     Active Substance: LOSARTAN
  4. SALBUTAMOL [Concomitant]
     Active Substance: ALBUTEROL
  5. VITAMIN B12 [Concomitant]
     Active Substance: CYANOCOBALAMIN
  6. ERGOCALCIFEROL. [Concomitant]
     Active Substance: ERGOCALCIFEROL
  7. VELTASSA [Suspect]
     Active Substance: PATIROMER
     Indication: HYPERKALAEMIA
     Route: 048
     Dates: start: 20170331, end: 20170418
  8. LANTUS [Concomitant]
     Active Substance: INSULIN GLARGINE
  9. VITAMIN D [Concomitant]
     Active Substance: CHOLECALCIFEROL
  10. NOVOLOG [Concomitant]
     Active Substance: INSULIN ASPART
  11. ACETYLSALICYLIC ACID [Concomitant]
     Active Substance: ASPIRIN
  12. COLACE [Concomitant]
     Active Substance: DOCUSATE SODIUM
  13. DICLOFENAC [Concomitant]
     Active Substance: DICLOFENAC
     Route: 061
  14. HYDRALAZINE [Concomitant]
     Active Substance: HYDRALAZINE HYDROCHLORIDE
  15. NORTRIPTYLINE [Concomitant]
     Active Substance: NORTRIPTYLINE

REACTIONS (1)
  - Rash [Recovering/Resolving]

NARRATIVE: CASE EVENT DATE: 20170331
